FAERS Safety Report 23616796 (Version 1)
Quarter: 2024Q1

REPORT INFORMATION
  Report Type: Other
  Country: IT (occurrence: IT)
  Receive Date: 20240311
  Receipt Date: 20240311
  Transmission Date: 20240410
  Serious: Yes (Hospitalization)
  Sender: FDA-Public Use
  Company Number: None

PATIENT

DRUGS (3)
  1. ONPATTRO [Suspect]
     Active Substance: PATISIRAN SODIUM
     Indication: Amyloidosis
     Dosage: 18.4 MILLIGRAM, 1 CYCLE
     Route: 042
     Dates: start: 20190404, end: 20190404
  2. EUTHYROX [Concomitant]
     Active Substance: LEVOTHYROXINE SODIUM
     Indication: Product used for unknown indication
     Dosage: 100 MICROGRAM TABLET
     Route: 065
  3. Olmesartan hidroclorotiazida [Concomitant]
     Indication: Product used for unknown indication
     Dosage: 20 MG/12.5 MG FILM COATED TABLET
     Route: 065

REACTIONS (3)
  - Ischaemic stroke [Recovering/Resolving]
  - Hemiparesis [Recovering/Resolving]
  - Dysarthria [Recovering/Resolving]

NARRATIVE: CASE EVENT DATE: 20210625
